FAERS Safety Report 24311416 (Version 1)
Quarter: 2024Q3

REPORT INFORMATION
  Report Type: Spontaneous
  Country: US (occurrence: US)
  Receive Date: 20240912
  Receipt Date: 20240912
  Transmission Date: 20241017
  Serious: No
  Sender: ELI LILLY AND CO
  Company Number: US-ELI_LILLY_AND_COMPANY-US202409007259

PATIENT
  Age: 36 Year
  Sex: Female

DRUGS (1)
  1. VERZENIO [Suspect]
     Active Substance: ABEMACICLIB
     Indication: Breast cancer female
     Dosage: 150 MG, BID
     Route: 048

REACTIONS (5)
  - Muscle spasms [Recovering/Resolving]
  - Breast pain [Unknown]
  - Asthenia [Unknown]
  - Diarrhoea [Recovering/Resolving]
  - Nausea [Unknown]
